FAERS Safety Report 13385976 (Version 1)
Quarter: 2017Q1

REPORT INFORMATION
  Report Type: Spontaneous
  Country: US (occurrence: US)
  Receive Date: 20170330
  Receipt Date: 20170330
  Transmission Date: 20170429
  Serious: Yes (Other)
  Sender: FDA-Public Use
  Company Number: US-SA-2017SA048796

PATIENT
  Sex: Male

DRUGS (1)
  1. FABRAZYME [Suspect]
     Active Substance: AGALSIDASE BETA
     Route: 041
     Dates: end: 201611

REACTIONS (3)
  - Weight bearing difficulty [Not Recovered/Not Resolved]
  - Surgery [Unknown]
  - Road traffic accident [Not Recovered/Not Resolved]
